FAERS Safety Report 7155033-1 (Version None)
Quarter: 2010Q4

REPORT INFORMATION
  Report Type: 
  Country: None (occurrence: None)
  Receive Date: 20101214
  Receipt Date: 20091210
  Transmission Date: 20110411
  Serious: No
  Sender: FDA-Public Use
  Company Number: US-AMGEN-KDL373914

PATIENT

DRUGS (4)
  1. ENBREL [Suspect]
     Indication: PSORIASIS
     Dosage: UNK UNK, QWK
     Dates: start: 20090930
  2. TOCOPHEROL CONCENTRATE CAP [Concomitant]
  3. MULTI-VITAMINS [Concomitant]
  4. FISH OIL [Concomitant]

REACTIONS (8)
  - DRY SKIN [None]
  - INJECTION SITE ERYTHEMA [None]
  - INJECTION SITE REACTION [None]
  - RASH [None]
  - RASH PAPULAR [None]
  - RASH PRURITIC [None]
  - SKIN IRRITATION [None]
  - URTICARIA [None]
